FAERS Safety Report 15463962 (Version 1)
Quarter: 2018Q4

REPORT INFORMATION
  Report Type: Report from Study
  Country: CA (occurrence: CA)
  Receive Date: 20181004
  Receipt Date: 20181004
  Transmission Date: 20190204
  Serious: Yes (Other)
  Sender: FDA-Public Use
  Company Number: CA-CIPHER-2018-CA-001361

PATIENT
  Age: 36 Year
  Sex: Female

DRUGS (2)
  1. XOLAIR [Suspect]
     Active Substance: OMALIZUMAB
     Indication: URTICARIA
     Dosage: 300.0 MILLIGRAM
     Route: 058
  2. AERIUS (DESLORATADINE) [Concomitant]
     Active Substance: DESLORATADINE
     Indication: PRODUCT USED FOR UNKNOWN INDICATION

REACTIONS (29)
  - Nightmare [Unknown]
  - Pain in extremity [Unknown]
  - Temperature intolerance [Unknown]
  - Weight decreased [Unknown]
  - Hair colour changes [Unknown]
  - Jaw fracture [Unknown]
  - Malaise [Unknown]
  - Alopecia [Unknown]
  - Skin infection [Unknown]
  - Swelling [Unknown]
  - Blood immunoglobulin E increased [Unknown]
  - Bruxism [Unknown]
  - Hyperhidrosis [Unknown]
  - Blood pressure decreased [Unknown]
  - Fatigue [Unknown]
  - Food intolerance [Unknown]
  - Neck pain [Unknown]
  - Urticaria [Unknown]
  - Feeling abnormal [Unknown]
  - Hypokinesia [Unknown]
  - Pain [Unknown]
  - Brain injury [Unknown]
  - Photosensitivity reaction [Unknown]
  - Food allergy [Unknown]
  - Musculoskeletal pain [Unknown]
  - Bone pain [Unknown]
  - Somnolence [Unknown]
  - Dizziness [Unknown]
  - Drug ineffective [Unknown]
